FAERS Safety Report 22371754 (Version 1)
Quarter: 2023Q2

REPORT INFORMATION
  Report Type: Spontaneous
  Country: US (occurrence: US)
  Receive Date: 20230526
  Receipt Date: 20230526
  Transmission Date: 20230721
  Serious: Yes (Hospitalization)
  Sender: FDA-Public Use
  Company Number: US-MYLANLABS-2023M1053809

PATIENT
  Age: 46 Year
  Sex: Female

DRUGS (4)
  1. APIXABAN [Suspect]
     Active Substance: APIXABAN
     Indication: Anticoagulant therapy
     Dosage: 2.5 MILLIGRAM, BID
     Route: 048
  2. APIXABAN [Suspect]
     Active Substance: APIXABAN
     Dosage: 5 MILLIGRAM
     Route: 048
  3. RIVAROXABAN [Suspect]
     Active Substance: RIVAROXABAN
     Indication: Deep vein thrombosis
     Dosage: UNK, SCHEDULED FOR A 21-DAY COURSE
     Route: 048
  4. IRON SUCROSE [Concomitant]
     Active Substance: IRON SUCROSE
     Indication: Anaemia
     Dosage: UNK
     Route: 065

REACTIONS (4)
  - Heavy menstrual bleeding [Recovered/Resolved]
  - Pulmonary embolism [Recovered/Resolved]
  - Pelvic venous thrombosis [Recovered/Resolved]
  - Vena cava thrombosis [Recovered/Resolved]
